FAERS Safety Report 7533194-X (Version None)
Quarter: 2011Q2

REPORT INFORMATION
  Report Type: 
  Country: None (occurrence: None)
  Receive Date: 20110608
  Receipt Date: 20021028
  Transmission Date: 20111010
  Serious: Yes (Other)
  Sender: FDA-Public Use
  Company Number: PHBS2002CA13061

PATIENT
  Sex: Female

DRUGS (1)
  1. COMTAN [Suspect]
     Dosage: 200 MG/D
     Dates: start: 20020924, end: 20021004

REACTIONS (1)
  - DYSPNOEA [None]
